FAERS Safety Report 6276349-7 (Version None)
Quarter: 2009Q3

REPORT INFORMATION
  Report Type: 
  Country: None (occurrence: None)
  Receive Date: 20090720
  Receipt Date: 20090720
  Transmission Date: 20100115
  Serious: Yes (Hospitalization)
  Sender: FDA-Public Use
  Company Number: None

PATIENT
  Sex: Female
  Weight: 58.9676 kg

DRUGS (2)
  1. EQUATE LICE KILLING SHAMPOO [Suspect]
     Indication: LICE INFESTATION
     Dosage: 1-2 OZ USED ONCE
     Dates: start: 20090704, end: 20090704
  2. LICEMD [Concomitant]

REACTIONS (6)
  - CHEST PAIN [None]
  - DEHYDRATION [None]
  - THROAT TIGHTNESS [None]
  - URTICARIA [None]
  - VOMITING [None]
  - WHEEZING [None]
